FAERS Safety Report 14958738 (Version 1)
Quarter: 2018Q2

REPORT INFORMATION
  Report Type: Report from Study
  Country: CR (occurrence: CR)
  Receive Date: 20180531
  Receipt Date: 20180531
  Transmission Date: 20180711
  Serious: Yes (Hospitalization, Other)
  Sender: FDA-Public Use
  Company Number: CR-BAYER-2018-101603

PATIENT
  Age: 81 Year
  Sex: Male

DRUGS (1)
  1. NEXAVAR [Suspect]
     Active Substance: SORAFENIB
     Indication: HEPATIC CANCER
     Dosage: 400 MG, BID
     Route: 048
     Dates: start: 20180518, end: 20180522

REACTIONS (3)
  - Movement disorder [Unknown]
  - Food refusal [Unknown]
  - Hospitalisation [Recovering/Resolving]

NARRATIVE: CASE EVENT DATE: 20180520
